FAERS Safety Report 5130355-4 (Version None)
Quarter: 2006Q4

REPORT INFORMATION
  Report Type: 
  Country: None (occurrence: None)
  Receive Date: 20061018
  Receipt Date: 20061018
  Transmission Date: 20070319
  Serious: Yes (Other)
  Sender: FDA-Public Use
  Company Number: None

PATIENT
  Age: 50 Year
  Sex: Female
  Weight: 53.0709 kg

DRUGS (6)
  1. PREDNISONE TAB [Suspect]
     Indication: ASTHMA
     Dosage: 40MGX5DAYS;30MGX3DAY ONCE/DAY PO
     Route: 048
     Dates: start: 20060912, end: 20060927
  2. SYNTHROID [Concomitant]
  3. SINGULAIR [Concomitant]
  4. ASTHMANEX [Concomitant]
  5. FLUTICASONE PROPIONATE [Concomitant]
  6. PREDNISONE TAB [Concomitant]

REACTIONS (12)
  - AMENORRHOEA [None]
  - ANXIETY [None]
  - ARTHRALGIA [None]
  - DISTURBANCE IN ATTENTION [None]
  - DIZZINESS [None]
  - EYELID OEDEMA [None]
  - HYPOAESTHESIA FACIAL [None]
  - JOINT SWELLING [None]
  - MUSCULOSKELETAL STIFFNESS [None]
  - PYREXIA [None]
  - RHEUMATOID ARTHRITIS [None]
  - SENSATION OF HEAVINESS [None]
